FAERS Safety Report 26108438 (Version 1)
Quarter: 2025Q4

REPORT INFORMATION
  Report Type: Spontaneous
  Country: US (occurrence: None)
  Receive Date: 20251129
  Receipt Date: 20251129
  Transmission Date: 20260117
  Serious: Yes (Other)
  Sender: FDA-CTU
  Company Number: None

PATIENT
  Age: 72 Year
  Sex: Female
  Weight: 59.4 kg

DRUGS (4)
  1. REMICADE [Suspect]
     Active Substance: INFLIXIMAB
     Indication: Crohn^s disease
  2. STELARA [Suspect]
     Active Substance: USTEKINUMAB
  3. CIMZIA [Suspect]
     Active Substance: CERTOLIZUMAB PEGOL
  4. MESALAMINE [Suspect]
     Active Substance: MESALAMINE

REACTIONS (11)
  - Urticaria [None]
  - Abdominal distension [None]
  - Food craving [None]
  - Malaise [None]
  - Weight increased [None]
  - Drug ineffective [None]
  - Hiatus hernia [None]
  - Hiccups [None]
  - Dyspepsia [None]
  - Refusal of treatment by patient [None]
  - Abdominal distension [None]
